FAERS Safety Report 10365305 (Version 1)
Quarter: 2014Q1

REPORT INFORMATION
  Report Type: Spontaneous
  Country: US (occurrence: None)
  Receive Date: 20140306
  Receipt Date: 20140306
  Transmission Date: 20141002
  Serious: Yes (Disabling)
  Sender: FDA-Public Use
  Company Number: 163-21880-13022298

PATIENT
  Age: 55 Year
  Sex: Female
  Weight: 81.65 kg

DRUGS (12)
  1. REVLIMID [Suspect]
     Indication: PLASMA CELL MYELOMA
     Dosage: 10 MG, 21 IN 28 D, PO
     Route: 048
     Dates: start: 20120820
  2. ZOLEDRONIC ACID(ZOLEDRONIC ACID)(INJECTION) [Concomitant]
  3. ZOLPIDEM(ZOLPIDEM) (TABLETS) [Concomitant]
  4. SIMVASTATIN(SIMVASTATIN)(TABLETS) [Concomitant]
  5. CALCIUM/VITAMIN D(OS-CAL) (TABLETS) [Concomitant]
  6. TOLTERODINE(TOLTERODINE)(CAPSULES) [Concomitant]
  7. ASPIRIN(ACETYLSALICYLIC ACID)(ENTERIC-COATED TABLET) [Concomitant]
  8. GABAPENTIN(GABAPENTIN)(CAPSULES) [Concomitant]
  9. ESOMEPRAZOLE(ESOMEPRAZOLE)(CAPSULES) [Concomitant]
  10. AMLODIPINE(AMLODIPINE) (TABLETS) [Concomitant]
  11. IBUPROFEN(IBUPROFEN)(TABLETS) [Concomitant]
  12. LORATIDINE(TABLETS) [Concomitant]

REACTIONS (4)
  - Myalgia [None]
  - Fatigue [None]
  - Influenza [None]
  - Pain in extremity [None]
